FAERS Safety Report 8450215-0 (Version None)
Quarter: 2012Q2

REPORT INFORMATION
  Report Type: 
  Country: None (occurrence: None)
  Receive Date: 20120614
  Receipt Date: 20120614
  Transmission Date: 20120825
  Serious: Yes (Hospitalization, Other)
  Sender: FDA-Public Use
  Company Number: None

PATIENT
  Age: 17 Year
  Sex: Female

DRUGS (1)
  1. MINOCYCLINE HCL [Suspect]
     Indication: ACNE
     Dosage: 100MG 2 TIMES A DAY PO
     Route: 048
     Dates: start: 20120201

REACTIONS (4)
  - DIPLOPIA [None]
  - PAPILLOEDEMA [None]
  - HEADACHE [None]
  - MASS [None]
